FAERS Safety Report 11238671 (Version 4)
Quarter: 2015Q3

REPORT INFORMATION
  Report Type: Spontaneous
  Country: GB (occurrence: GB)
  Receive Date: 20150706
  Receipt Date: 20150831
  Transmission Date: 20151125
  Serious: Yes (Death, Hospitalization, Other)
  Sender: FDA-Public Use
  Company Number: PHFR2015GB004056

PATIENT
  Sex: Male

DRUGS (3)
  1. CLOZARIL [Suspect]
     Active Substance: CLOZAPINE
     Indication: SCHIZOPHRENIA
     Dosage: UNK
     Route: 048
     Dates: start: 20090811
  2. AMISULPRIDE [Interacting]
     Active Substance: AMISULPRIDE
     Indication: SCHIZOPHRENIA
     Dosage: 400 MG, QD
     Route: 048
  3. CLOZARIL [Interacting]
     Active Substance: CLOZAPINE
     Dosage: 200 MG, QD
     Route: 048

REACTIONS (6)
  - Infection [Unknown]
  - Malaise [Unknown]
  - Fatigue [Unknown]
  - Death [Fatal]
  - Lung neoplasm malignant [Unknown]
  - Drug interaction [Unknown]
